FAERS Safety Report 25810793 (Version 1)
Quarter: 2025Q3

REPORT INFORMATION
  Report Type: Spontaneous
  Country: CN (occurrence: CN)
  Receive Date: 20250917
  Receipt Date: 20250917
  Transmission Date: 20251020
  Serious: Yes (Life-Threatening)
  Sender: GE HEALTHCARE
  Company Number: None

PATIENT
  Age: 74 Year
  Sex: Female

DRUGS (1)
  1. OMNIPAQUE [Suspect]
     Active Substance: IOHEXOL
     Indication: Angiogram cerebral
     Route: 013
     Dates: start: 20250807, end: 20250807

REACTIONS (4)
  - Muscular weakness [Recovered/Resolved]
  - Unresponsive to stimuli [Recovered/Resolved]
  - Confusional state [Recovering/Resolving]
  - Chills [Recovering/Resolving]

NARRATIVE: CASE EVENT DATE: 20250807
